FAERS Safety Report 16738606 (Version 2)
Quarter: 2019Q3

REPORT INFORMATION
  Report Type: Report from Study
  Country: None (occurrence: US)
  Receive Date: 20190826
  Receipt Date: 20190923
  Transmission Date: 20191005
  Serious: Yes (Other)
  Sender: FDA-Public Use
  Company Number: US-ABBVIE-19K-163-2692374-00

PATIENT
  Sex: Female

DRUGS (2)
  1. HUMIRA [Suspect]
     Active Substance: ADALIMUMAB
     Route: 058
     Dates: start: 20190214
  2. HUMIRA [Suspect]
     Active Substance: ADALIMUMAB
     Indication: CROHN^S DISEASE
     Dosage: CITRATE FREE
     Route: 058
     Dates: start: 201705

REACTIONS (31)
  - Nasal crusting [Unknown]
  - Mental disorder [Unknown]
  - Asthenia [Unknown]
  - Inflammation [Unknown]
  - Rhinitis [Unknown]
  - Crohn^s disease [Unknown]
  - Nausea [Unknown]
  - Pain [Unknown]
  - Gait disturbance [Unknown]
  - Fatigue [Unknown]
  - Spinal fracture [Unknown]
  - Epistaxis [Unknown]
  - Sinus disorder [Unknown]
  - Dehydration [Unknown]
  - Small intestinal stenosis [Unknown]
  - Nasal dryness [Unknown]
  - Diarrhoea [Unknown]
  - Malignant melanoma [Unknown]
  - Rhinalgia [Unknown]
  - Swelling [Unknown]
  - Stress [Unknown]
  - Palpitations [Unknown]
  - Weight decreased [Unknown]
  - Hyperventilation [Unknown]
  - Eczema [Recovered/Resolved]
  - Abdominal discomfort [Unknown]
  - Neoplasm malignant [Unknown]
  - Back pain [Unknown]
  - Basal cell carcinoma [Unknown]
  - Depression [Not Recovered/Not Resolved]
  - Arthralgia [Unknown]
